FAERS Safety Report 4407648-9 (Version None)
Quarter: 2004Q3

REPORT INFORMATION
  Report Type: 
  Country: None (occurrence: None)
  Receive Date: 20040726
  Receipt Date: 20040714
  Transmission Date: 20050211
  Serious: Yes (Death, Hospitalization, Other)
  Sender: FDA-Public Use
  Company Number: GB-MERCK-0407USA01271

PATIENT
  Age: 4 Year
  Sex: Female

DRUGS (3)
  1. ELSPAR [Suspect]
     Indication: ACUTE LYMPHOCYTIC LEUKAEMIA
     Route: 042
  2. DEXAMETHASONE [Concomitant]
     Route: 065
  3. VINCRISTINE SULFATE [Suspect]
     Indication: ACUTE LYMPHOCYTIC LEUKAEMIA
     Route: 065

REACTIONS (10)
  - CELLULITIS [None]
  - CEREBRAL HAEMORRHAGE [None]
  - COMA [None]
  - CONVULSION [None]
  - ESCHERICHIA SEPSIS [None]
  - HAEMODIALYSIS [None]
  - HAEMOLYTIC URAEMIC SYNDROME [None]
  - NEUTROPENIA [None]
  - RENAL TUBULAR NECROSIS [None]
  - SIMPLE PARTIAL SEIZURES [None]
